FAERS Safety Report 9367083 (Version 1)
Quarter: 2013Q2

REPORT INFORMATION
  Report Type: Spontaneous
  Country: US (occurrence: US)
  Receive Date: 20130625
  Receipt Date: 20130625
  Transmission Date: 20140414
  Serious: No
  Sender: FDA-Public Use
  Company Number: US-JNJFOC-20130607718

PATIENT
  Sex: Female

DRUGS (4)
  1. DURAGESIC [Suspect]
     Indication: ARTHRITIS
     Route: 062
     Dates: start: 2003
  2. DURAGESIC [Suspect]
     Indication: PAIN
     Route: 062
     Dates: start: 2003
  3. MYLAN FENTANYL TRANSDERMAL SYSTEM [Suspect]
     Indication: ARTHRITIS
     Route: 062
  4. MYLAN FENTANYL TRANSDERMAL SYSTEM [Suspect]
     Indication: PAIN
     Route: 062

REACTIONS (5)
  - Bladder disorder [Not Recovered/Not Resolved]
  - Product quality issue [Unknown]
  - Wrong technique in drug usage process [Unknown]
  - Skin injury [Not Recovered/Not Resolved]
  - Frustration [Not Recovered/Not Resolved]
